FAERS Safety Report 5114856-0 (Version None)
Quarter: 2006Q3

REPORT INFORMATION
  Report Type: 
  Country: None (occurrence: None)
  Receive Date: 20060921
  Receipt Date: 20060912
  Transmission Date: 20061208
  Serious: Yes (Hospitalization, Other)
  Sender: FDA-Public Use
  Company Number: 2006014607

PATIENT
  Age: 35 Year
  Sex: Female

DRUGS (3)
  1. SOMAVERT [Suspect]
     Indication: ACROMEGALY
     Dosage: 20 MG (20 MG), SUBCUTANEOUS; SEE IMAGE
     Route: 058
     Dates: start: 20050201
  2. SOMAVERT [Suspect]
     Indication: ACROMEGALY
     Dosage: 20 MG (20 MG), SUBCUTANEOUS; SEE IMAGE
     Route: 058
     Dates: start: 20060328
  3. SANDOSTATIN [Concomitant]

REACTIONS (2)
  - BILE DUCT STONE [None]
  - CHOLELITHIASIS [None]
